FAERS Safety Report 4299093-4 (Version None)
Quarter: 2004Q1

REPORT INFORMATION
  Report Type: 
  Country: None (occurrence: None)
  Receive Date: 20040217
  Receipt Date: 20040209
  Transmission Date: 20041129
  Serious: No
  Sender: FDA-Public Use
  Company Number: 7356

PATIENT
  Age: 58 Year
  Sex: Female

DRUGS (3)
  1. METHOTREXATE [Suspect]
     Indication: RHEUMATOID ARTHRITIS
     Dosage: 12.5 MG WEEKLY, INJ
     Dates: start: 20020305, end: 20020726
  2. KETOPROFEN [Concomitant]
  3. HYDROXYCHLOROQUINE SULFATE [Concomitant]

REACTIONS (2)
  - DRUG ERUPTION [None]
  - PHOTOSENSITIVITY REACTION [None]
